FAERS Safety Report 12466544 (Version 2)
Quarter: 2019Q2

REPORT INFORMATION
  Report Type: Report from Study
  Country: JP (occurrence: JP)
  Receive Date: 20160615
  Receipt Date: 20190607
  Transmission Date: 20190711
  Serious: Yes (Hospitalization, Other)
  Sender: FDA-Public Use
  Company Number: JP-BRISTOL-MYERS SQUIBB COMPANY-BMS-2016-046605

PATIENT
  Age: 80 Year
  Sex: Male
  Weight: 68 kg

DRUGS (13)
  1. EPLERENONE. [Concomitant]
     Active Substance: EPLERENONE
     Indication: DIURETIC THERAPY
     Dosage: 25 MILLIGRAM, QD
     Route: 048
     Dates: start: 20160501
  2. FUROSEMIDE. [Concomitant]
     Active Substance: FUROSEMIDE
     Indication: DIURETIC THERAPY
     Dosage: 20 MILLIGRAM, QD
     Route: 048
     Dates: start: 20160504
  3. CARVEDILOL. [Concomitant]
     Active Substance: CARVEDILOL
     Indication: CARDIOVASCULAR EVENT PROPHYLAXIS
     Dosage: 2.5 MILLIGRAM, QD
     Route: 048
     Dates: start: 20160501
  4. APIXABAN [Suspect]
     Active Substance: APIXABAN
     Indication: CEREBROVASCULAR ACCIDENT PROPHYLAXIS
     Dosage: 5 MILLIGRAM, BID
     Route: 048
     Dates: start: 20160512, end: 20160613
  5. APIXABAN [Suspect]
     Active Substance: APIXABAN
     Indication: PRODUCT USED FOR UNKNOWN INDICATION
     Dosage: 2.5 MILLIGRAM, BID
     Route: 048
     Dates: start: 20160614, end: 20160628
  6. CLOPIDOGREL BISULFATE. [Suspect]
     Active Substance: CLOPIDOGREL BISULFATE
     Indication: CORONARY ANGIOPLASTY
     Dosage: 75 MILLIGRAM, QD
     Route: 048
     Dates: start: 20160511, end: 20160614
  7. LANSOPRAZOLE. [Concomitant]
     Active Substance: LANSOPRAZOLE
     Indication: PROPHYLAXIS
     Dosage: 15 MILLIGRAM, QD
     Route: 048
     Dates: start: 20160511
  8. OLMESARTAN [Concomitant]
     Active Substance: OLMESARTAN
     Indication: BLOOD PRESSURE MANAGEMENT
     Dosage: 10 MILLIGRAM, BID
     Route: 048
     Dates: start: 20160501, end: 20160618
  9. ATORVASTATIN [ATORVASTATIN CALCIUM] [Concomitant]
     Active Substance: ATORVASTATIN CALCIUM
     Indication: LIPIDS ABNORMAL
     Dosage: 10 MILLIGRAM, QD
     Route: 048
     Dates: start: 20160511
  10. FEBUXOSTAT. [Concomitant]
     Active Substance: FEBUXOSTAT
     Indication: GOUT
     Dosage: 20 MILLIGRAM, QD
     Route: 048
     Dates: start: 2011
  11. ASPIRIN. [Suspect]
     Active Substance: ASPIRIN
     Indication: CORONARY ANGIOPLASTY
     Dosage: 100 MILLIGRAM, QD
     Route: 048
     Dates: start: 20160511, end: 20160627
  12. LANSOPRAZOLE. [Concomitant]
     Active Substance: LANSOPRAZOLE
     Indication: PRODUCT USED FOR UNKNOWN INDICATION
     Dosage: 30 MILLIGRAM, QD
     Route: 048
  13. CARVEDILOL. [Concomitant]
     Active Substance: CARVEDILOL
     Indication: PRODUCT USED FOR UNKNOWN INDICATION
     Dosage: 1.25 MILLIGRAM, QD
     Route: 048

REACTIONS (3)
  - Tumour haemorrhage [Recovering/Resolving]
  - Gastric cancer [Recovered/Resolved]
  - Renal impairment [Unknown]

NARRATIVE: CASE EVENT DATE: 20160607
